FAERS Safety Report 15117067 (Version 1)
Quarter: 2018Q2

REPORT INFORMATION
  Report Type: Spontaneous
  Country: US (occurrence: US)
  Receive Date: 20180612
  Receipt Date: 20180612
  Transmission Date: 20180711
  Serious: Yes (Hospitalization)
  Sender: FDA-Public Use
  Company Number: None

PATIENT
  Age: 83 Year
  Sex: Female

DRUGS (7)
  1. METOPROLOL SUCCINATE ER 50MG [Concomitant]
     Dates: start: 20170316
  2. LOSARTAN 50MG TAB [Concomitant]
     Dates: start: 20170316
  3. GABAPENTIN 300MG CAP [Concomitant]
     Dates: start: 20161201
  4. HCTZ 25MG TAB [Concomitant]
     Dates: start: 20170316
  5. FLOVENT HFA 110MCG [Concomitant]
     Dates: start: 20170510
  6. VALSARTAN. [Suspect]
     Active Substance: VALSARTAN
     Indication: HYPERTENSION
     Route: 048
     Dates: start: 20180611, end: 20180611
  7. SIMVASTATIN 40MG TAB [Concomitant]
     Dates: start: 20170316

REACTIONS (1)
  - Blood pressure increased [None]

NARRATIVE: CASE EVENT DATE: 20180611
